FAERS Safety Report 8062505-4 (Version None)
Quarter: 2012Q1

REPORT INFORMATION
  Report Type: 
  Country: None (occurrence: None)
  Receive Date: 20120117
  Receipt Date: 20120109
  Transmission Date: 20120608
  Serious: Yes (Hospitalization, Other)
  Sender: FDA-Public Use
  Company Number: 2012SP001577

PATIENT
  Sex: Female

DRUGS (2)
  1. RIBAVIRIN [Suspect]
     Indication: HEPATITIS C
     Dates: start: 20111201
  2. PEGASYS [Suspect]
     Indication: HEPATITIS C
     Dates: start: 20111201

REACTIONS (2)
  - DYSPNOEA [None]
  - DYSPHAGIA [None]
